FAERS Safety Report 4448661-5 (Version None)
Quarter: 2004Q3

REPORT INFORMATION
  Report Type: 
  Country: None (occurrence: None)
  Receive Date: 20040730
  Receipt Date: 20031022
  Transmission Date: 20050211
  Serious: Yes (Other)
  Sender: FDA-Public Use
  Company Number: 2003-10-2657

PATIENT
  Age: 57 Year
  Sex: Female

DRUGS (3)
  1. INTRON A [Suspect]
     Indication: MALIGNANT MELANOMA
     Dosage: 15 MIU TIW
     Dates: start: 20030407, end: 20030905
  2. TRIAMTERENE AND HYDROCHLOROTHIAZIDE [Concomitant]
  3. WELLBUTRIN [Concomitant]

REACTIONS (1)
  - RETINAL EXUDATES [None]
